FAERS Safety Report 8247030-X (Version None)
Quarter: 2012Q1

REPORT INFORMATION
  Report Type: 
  Country: None (occurrence: None)
  Receive Date: 20120330
  Receipt Date: 20120330
  Transmission Date: 20120608
  Serious: Yes (Life-Threatening)
  Sender: FDA-Public Use
  Company Number: None

PATIENT
  Age: 71 Year
  Sex: Female
  Weight: 58.967 kg

DRUGS (3)
  1. ROPINIROLE [Concomitant]
  2. RISPERDAL [Suspect]
     Indication: DRUG DISPENSING ERROR
     Dates: start: 20120324, end: 20120325
  3. RISPERDAL [Suspect]
     Indication: PARKINSON'S DISEASE
     Dates: start: 20120324, end: 20120325

REACTIONS (11)
  - HYPERSOMNIA [None]
  - CONDITION AGGRAVATED [None]
  - MALAISE [None]
  - MEDICATION ERROR [None]
  - FATIGUE [None]
  - WRONG DRUG ADMINISTERED [None]
  - PARKINSON'S DISEASE [None]
  - TREMOR [None]
  - DRUG DISPENSING ERROR [None]
  - ABASIA [None]
  - MENTAL DISORDER [None]
